FAERS Safety Report 12561205 (Version 1)
Quarter: 2016Q3

REPORT INFORMATION
  Report Type: Spontaneous
  Country: US (occurrence: US)
  Receive Date: 20160715
  Receipt Date: 20160715
  Transmission Date: 20161109
  Serious: No
  Sender: FDA-Public Use
  Company Number: US-BEH-2016071041

PATIENT
  Age: 49 Year
  Sex: Female
  Weight: 79.37 kg

DRUGS (25)
  1. NASONEX [Concomitant]
     Active Substance: MOMETASONE FUROATE
  2. OXAZEPAM. [Concomitant]
     Active Substance: OXAZEPAM
  3. ALBUTEROL                          /00139501/ [Concomitant]
     Active Substance: ALBUTEROL
  4. AMOXICILLIN. [Concomitant]
     Active Substance: AMOXICILLIN
  5. CITALOPRAM [Concomitant]
     Active Substance: CITALOPRAM HYDROBROMIDE
  6. SYMBICORT [Concomitant]
     Active Substance: BUDESONIDE\FORMOTEROL FUMARATE DIHYDRATE
  7. DIPHENHYDRAMINE. [Concomitant]
     Active Substance: DIPHENHYDRAMINE
  8. PROVENTIL [Concomitant]
     Active Substance: ALBUTEROL
  9. PROVENTIL [Concomitant]
     Active Substance: ALBUTEROL
  10. LISINOPRIL. [Concomitant]
     Active Substance: LISINOPRIL
  11. ZEMAIRA [Suspect]
     Active Substance: .ALPHA.1-PROTEINASE INHIBITOR HUMAN
     Dosage: UNK
     Route: 042
     Dates: start: 201602
  12. ZEMAIRA [Suspect]
     Active Substance: .ALPHA.1-PROTEINASE INHIBITOR HUMAN
     Indication: IMMUNODEFICIENCY
     Dosage: UNK
     Route: 042
     Dates: start: 201601
  13. ACETAMINOPHEN. [Concomitant]
     Active Substance: ACETAMINOPHEN
  14. SODIUM CHLORIDE. [Concomitant]
     Active Substance: SODIUM CHLORIDE
  15. LMX                                /00033401/ [Concomitant]
  16. PREDNISONE. [Concomitant]
     Active Substance: PREDNISONE
  17. KEFLEX [Concomitant]
     Active Substance: CEPHALEXIN
  18. PREVACID [Concomitant]
     Active Substance: LANSOPRAZOLE
  19. OXYGEN. [Concomitant]
     Active Substance: OXYGEN
  20. OXYGEN. [Concomitant]
     Active Substance: OXYGEN
  21. EPIPEN [Concomitant]
     Active Substance: EPINEPHRINE
  22. PANTOPRAZOLE [Concomitant]
     Active Substance: PANTOPRAZOLE SODIUM
  23. HEPARIN [Concomitant]
     Active Substance: HEPARIN SODIUM
  24. ZEMAIRA [Suspect]
     Active Substance: .ALPHA.1-PROTEINASE INHIBITOR HUMAN
     Indication: ALPHA-1 ANTI-TRYPSIN DEFICIENCY
     Dosage: 125 MG/KG, QW
     Route: 042
     Dates: start: 201601
  25. NASONEX [Concomitant]
     Active Substance: MOMETASONE FUROATE

REACTIONS (1)
  - Influenza like illness [Unknown]

NARRATIVE: CASE EVENT DATE: 20160116
